FAERS Safety Report 16201227 (Version 1)
Quarter: 2019Q2

REPORT INFORMATION
  Report Type: Spontaneous
  Country: US (occurrence: US)
  Receive Date: 20190416
  Receipt Date: 20190416
  Transmission Date: 20190711
  Serious: No
  Sender: FDA-Public Use
  Company Number: US-ASTRAZENECA-2019SE53860

PATIENT
  Sex: Male

DRUGS (1)
  1. SEROQUEL [Suspect]
     Active Substance: QUETIAPINE FUMARATE
     Indication: SEDATIVE THERAPY
     Route: 048

REACTIONS (4)
  - Agitation [Unknown]
  - Off label use [Unknown]
  - Delirium [Unknown]
  - Product use issue [Unknown]
